FAERS Safety Report 23016337 (Version 3)
Quarter: 2025Q2

REPORT INFORMATION
  Report Type: Spontaneous
  Country: JP (occurrence: JP)
  Receive Date: 20231002
  Receipt Date: 20250611
  Transmission Date: 20250717
  Serious: Yes (Other)
  Sender: NOVARTIS
  Company Number: JP-002147023-NVSJ2023JP013564

PATIENT
  Sex: Female
  Weight: 35.5 kg

DRUGS (1)
  1. COSENTYX [Suspect]
     Active Substance: SECUKINUMAB
     Indication: Product used for unknown indication
     Route: 058
     Dates: start: 20230726, end: 20230726

REACTIONS (2)
  - Weight fluctuation [Unknown]
  - Mood swings [Recovering/Resolving]

NARRATIVE: CASE EVENT DATE: 20230909
